FAERS Safety Report 7982122-1 (Version None)
Quarter: 2011Q4

REPORT INFORMATION
  Report Type: 
  Country: None (occurrence: None)
  Receive Date: 20111215
  Receipt Date: 20111211
  Transmission Date: 20120403
  Serious: No
  Sender: FDA-Public Use
  Company Number: US-PFIZER INC-2011301586

PATIENT
  Sex: Male
  Weight: 107 kg

DRUGS (4)
  1. LISINOPRIL [Concomitant]
     Dosage: UNK
  2. GLUCOTROL XL [Suspect]
     Indication: DIABETES MELLITUS
     Dosage: 10 MG, 3X/DAY
     Route: 048
     Dates: start: 20111001
  3. METFORMIN [Concomitant]
     Dosage: UNK
  4. GLIPIZIDE [Concomitant]
     Dosage: UNK

REACTIONS (3)
  - NASAL DISCOMFORT [None]
  - ERYTHEMA [None]
  - NASAL OEDEMA [None]
